FAERS Safety Report 7283429-6 (Version None)
Quarter: 2011Q1

REPORT INFORMATION
  Report Type: 
  Country: None (occurrence: None)
  Receive Date: 20110209
  Receipt Date: 20101129
  Transmission Date: 20110831
  Serious: Yes (Other)
  Sender: FDA-Public Use
  Company Number: A0896708A

PATIENT
  Age: 88 Year

DRUGS (1)
  1. PAXIL [Suspect]
     Route: 065

REACTIONS (1)
  - PULMONARY HYPERTENSION [None]
